FAERS Safety Report 4280509-4 (Version None)
Quarter: 2004Q1

REPORT INFORMATION
  Report Type: 
  Country: None (occurrence: None)
  Receive Date: 20040127
  Receipt Date: 20040115
  Transmission Date: 20041129
  Serious: No
  Sender: FDA-Public Use
  Company Number: 04H-161-0247351-00

PATIENT

DRUGS (1)
  1. HEPARIN SODIUM [Suspect]
     Indication: THROMBOSIS PROPHYLAXIS
     Dosage: INTRAVENOUS
     Route: 042

REACTIONS (2)
  - CARDIAC TAMPONADE [None]
  - PROCEDURAL COMPLICATION [None]
